FAERS Safety Report 4802183-8 (Version None)
Quarter: 2005Q4

REPORT INFORMATION
  Report Type: 
  Country: None (occurrence: None)
  Receive Date: 20051011
  Receipt Date: 20050926
  Transmission Date: 20060501
  Serious: Yes (Hospitalization, Other)
  Sender: FDA-Public Use
  Company Number: 2005BI014000

PATIENT
  Sex: Female

DRUGS (9)
  1. AVONOEX LYOPHILIZED [Suspect]
     Indication: MULTIPLE SCLEROSIS
     Dosage: 30 UG QW IM
     Route: 030
     Dates: start: 20030131
  2. AVONEX [Suspect]
     Indication: MULTIPLE SCLEROSIS
     Dosage: 30 UG QW IM
     Route: 030
  3. PROTONIX [Concomitant]
  4. SYNTHROID [Concomitant]
  5. FOSAMAX [Concomitant]
  6. NEURONTIN [Concomitant]
  7. TEMAZEPAM [Concomitant]
  8. EVASTA [Concomitant]
  9. HEART MEDICATIONS [Concomitant]

REACTIONS (9)
  - ARTERIAL OCCLUSIVE DISEASE [None]
  - ASTHMA [None]
  - ATRIAL FIBRILLATION [None]
  - ATRIAL FLUTTER [None]
  - CARDIAC DISORDER [None]
  - CARDIAC FAILURE [None]
  - CARDIOMEGALY [None]
  - PULMONARY HYPERTENSION [None]
  - UNEVALUABLE EVENT [None]
